FAERS Safety Report 17577970 (Version 4)
Quarter: 2020Q3

REPORT INFORMATION
  Report Type: Spontaneous
  Country: US (occurrence: US)
  Receive Date: 20200324
  Receipt Date: 20200930
  Transmission Date: 20201102
  Serious: Yes (Other)
  Sender: FDA-Public Use
  Company Number: US-GILEAD-2020-0455828

PATIENT
  Age: 37 Year
  Sex: Female
  Weight: 53.52 kg

DRUGS (18)
  1. HEPARIN [Concomitant]
     Active Substance: HEPARIN SODIUM
  2. VANCOMYCIN [Concomitant]
     Active Substance: VANCOMYCIN
  3. VIDEX [Concomitant]
     Active Substance: DIDANOSINE
  4. BIKTARVY [Concomitant]
     Active Substance: BICTEGRAVIR SODIUM\EMTRICITABINE\TENOFOVIR ALAFENAMIDE FUMARATE
  5. ASPIRIN KENT [ACETYLSALICYLIC ACID] [Concomitant]
  6. JULUCA [Concomitant]
     Active Substance: DOLUTEGRAVIR SODIUM\RILPIVIRINE HYDROCHLORIDE
  7. VIRAMUNE [Concomitant]
     Active Substance: NEVIRAPINE
  8. AMBIEN [Concomitant]
     Active Substance: ZOLPIDEM TARTRATE
  9. LASIX [Concomitant]
     Active Substance: FUROSEMIDE
  10. PREDNISONE. [Concomitant]
     Active Substance: PREDNISONE
  11. REYATAZ [Concomitant]
     Active Substance: ATAZANAVIR SULFATE
  12. COMPLERA [Suspect]
     Active Substance: EMTRICITABINE\RILPIVIRINE HYDROCHLORIDE\TENOFOVIR DISOPROXIL FUMARATE
     Indication: HIV INFECTION
     Dosage: UNK
     Route: 048
     Dates: start: 20151229, end: 20190305
  13. AMOXICILLIN. [Concomitant]
     Active Substance: AMOXICILLIN
  14. ACETAMINOPHEN. [Concomitant]
     Active Substance: ACETAMINOPHEN
  15. BACTRIM [Concomitant]
     Active Substance: SULFAMETHOXAZOLE\TRIMETHOPRIM
  16. RETROVIR [Concomitant]
     Active Substance: ZIDOVUDINE
  17. ZOFRAN [Concomitant]
     Active Substance: ONDANSETRON HYDROCHLORIDE
  18. LEXAPRO [Concomitant]
     Active Substance: ESCITALOPRAM OXALATE

REACTIONS (8)
  - Anxiety [Not Recovered/Not Resolved]
  - Renal failure [Not Recovered/Not Resolved]
  - Pain [Unknown]
  - Anaemia [Unknown]
  - Emotional distress [Unknown]
  - Depression [Not Recovered/Not Resolved]
  - Economic problem [Unknown]
  - Chronic kidney disease [Not Recovered/Not Resolved]

NARRATIVE: CASE EVENT DATE: 201905
